FAERS Safety Report 12001367 (Version 2)
Quarter: 2016Q3

REPORT INFORMATION
  Report Type: Report from Study
  Country: GB (occurrence: GB)
  Receive Date: 20160204
  Receipt Date: 20160922
  Transmission Date: 20161109
  Serious: Yes (Death, Hospitalization, Other)
  Sender: FDA-Public Use
  Company Number: GB-SEATTLE GENETICS-2016SGN00128

PATIENT

DRUGS (1)
  1. BRENTUXIMAB VEDOTIN [Suspect]
     Active Substance: BRENTUXIMAB VEDOTIN
     Indication: HODGKIN^S DISEASE
     Dosage: 1.8 MG/KG, Q21D
     Route: 065
     Dates: start: 20130808

REACTIONS (3)
  - Thrombocytopenia [Unknown]
  - Hodgkin^s disease [Fatal]
  - Leukopenia [Unknown]

NARRATIVE: CASE EVENT DATE: 20130808
